FAERS Safety Report 22811796 (Version 5)
Quarter: 2024Q1

REPORT INFORMATION
  Report Type: Spontaneous
  Country: US (occurrence: US)
  Receive Date: 20230811
  Receipt Date: 20240226
  Transmission Date: 20240409
  Serious: No
  Sender: FDA-Public Use
  Company Number: US-SA-2023SA216020

PATIENT
  Age: 68 Year
  Sex: Male

DRUGS (4)
  1. DUPIXENT [Suspect]
     Active Substance: DUPILUMAB
     Indication: Dermatitis atopic
     Dosage: 600 MG, 1X
     Route: 058
     Dates: start: 202301, end: 202301
  2. DUPIXENT [Suspect]
     Active Substance: DUPILUMAB
     Dosage: 300 MG, QOW
     Route: 058
     Dates: start: 2023
  3. MENATETRENONE [Concomitant]
     Active Substance: MENATETRENONE
     Dosage: UNK
  4. ACTEMRA [Concomitant]
     Active Substance: TOCILIZUMAB

REACTIONS (2)
  - Cyst [Unknown]
  - Joint injury [Unknown]

NARRATIVE: CASE EVENT DATE: 20230101
